FAERS Safety Report 5631704-0 (Version None)
Quarter: 2008Q1

REPORT INFORMATION
  Report Type: 
  Country: None (occurrence: None)
  Receive Date: 20080220
  Receipt Date: 20080214
  Transmission Date: 20080703
  Serious: Yes (Other)
  Sender: FDA-Public Use
  Company Number: US-JNJFOC-20080204107

PATIENT
  Age: 20 Year
  Sex: Female
  Weight: 63.5 kg

DRUGS (2)
  1. ORTHO EVRA [Suspect]
     Indication: CONTRACEPTION
     Route: 062
  2. LEXAPRO [Concomitant]
     Indication: ANXIETY

REACTIONS (2)
  - DYSPNOEA [None]
  - HYPOAESTHESIA [None]
